FAERS Safety Report 18971005 (Version 1)
Quarter: 2021Q1

REPORT INFORMATION
  Report Type: Report from Study
  Country: US (occurrence: US)
  Receive Date: 20210305
  Receipt Date: 20210305
  Transmission Date: 20210420
  Serious: Yes (Death, Other)
  Sender: FDA-Public Use
  Company Number: US-ACADIA PHARMACEUTICALS INC.-ACA-2021-PIM-000549

PATIENT
  Age: 73 Year
  Sex: Male

DRUGS (15)
  1. FUROSEMIDE. [Concomitant]
     Active Substance: FUROSEMIDE
  2. PRAMIPEXOLE. [Concomitant]
     Active Substance: PRAMIPEXOLE
  3. MORPHINE [Concomitant]
     Active Substance: MORPHINE
  4. LORAZEPAM. [Concomitant]
     Active Substance: LORAZEPAM
  5. BUSPIRONE [Concomitant]
     Active Substance: BUSPIRONE HYDROCHLORIDE
  6. SIMVASTATIN. [Concomitant]
     Active Substance: SIMVASTATIN
  7. CARBIDOPA/LEVODOPA [Concomitant]
     Active Substance: CARBIDOPA\LEVODOPA
  8. NUPLAZID [Suspect]
     Active Substance: PIMAVANSERIN TARTRATE
     Indication: PARKINSON^S DISEASE PSYCHOSIS
     Dosage: 34 MILLIGRAM, QD
     Route: 048
     Dates: start: 20200501, end: 20210204
  9. RASAGILINE. [Concomitant]
     Active Substance: RASAGILINE
  10. BUPRENORPHINE. [Concomitant]
     Active Substance: BUPRENORPHINE
  11. LOSARTAN. [Concomitant]
     Active Substance: LOSARTAN
  12. HYDROCODONE [Concomitant]
     Active Substance: HYDROCODONE
  13. TRAZODONE [Concomitant]
     Active Substance: TRAZODONE HYDROCHLORIDE
  14. SERTRALINE [Concomitant]
     Active Substance: SERTRALINE HYDROCHLORIDE
  15. INBRIJA [Concomitant]
     Active Substance: LEVODOPA

REACTIONS (2)
  - Dysphagia [Unknown]
  - Death [Recovered/Resolved]

NARRATIVE: CASE EVENT DATE: 20210208
